FAERS Safety Report 7232804-4 (Version None)
Quarter: 2011Q1

REPORT INFORMATION
  Report Type: 
  Country: None (occurrence: None)
  Receive Date: 20110119
  Receipt Date: 20110105
  Transmission Date: 20110831
  Serious: No
  Sender: FDA-Public Use
  Company Number: US-B.I. PHARMACEUTICALS,INC./RIDGEFIELD-2011-BP-00636BP

PATIENT
  Age: 78 Year
  Sex: Female

DRUGS (3)
  1. PRADAXA [Suspect]
     Indication: ATRIAL FIBRILLATION
     Dosage: 300 MG
     Route: 048
     Dates: start: 20101215
  2. METFORMIN HCL [Concomitant]
     Indication: DIABETES MELLITUS
  3. PAXIL [Concomitant]
     Indication: ANXIETY

REACTIONS (1)
  - INSOMNIA [None]
